FAERS Safety Report 5399220-1 (Version None)
Quarter: 2007Q3

REPORT INFORMATION
  Report Type: 
  Country: None (occurrence: None)
  Receive Date: 20070727
  Receipt Date: 20070717
  Transmission Date: 20080115
  Serious: Yes (Other)
  Sender: FDA-Public Use
  Company Number: HQWYE094217JUL07

PATIENT
  Sex: Male
  Weight: 59.7 kg

DRUGS (1)
  1. REFACTO [Suspect]
     Indication: FACTOR VIII DEFICIENCY
     Dosage: 1000 UNIT EVERY 1 DAY;  CUMULATIVE DOSE TO EVENT: 32000 UNIT
     Route: 042
     Dates: start: 20070531, end: 20070701

REACTIONS (1)
  - FACTOR VIII INHIBITION [None]
